FAERS Safety Report 12556314 (Version 2)
Quarter: 2016Q3

REPORT INFORMATION
  Report Type: Spontaneous
  Country: IT (occurrence: IT)
  Receive Date: 20160714
  Receipt Date: 20160722
  Transmission Date: 20161109
  Serious: Yes (Hospitalization)
  Sender: FDA-Public Use
  Company Number: IT-009507513-1607ITA006067

PATIENT
  Age: 50 Year
  Sex: Male
  Weight: 103 kg

DRUGS (4)
  1. REBETOL [Suspect]
     Active Substance: RIBAVIRIN
     Indication: HEPATITIS C
     Dosage: 800 MG DAILY
     Route: 048
     Dates: start: 20160415, end: 20160506
  2. INDERAL [Concomitant]
     Active Substance: PROPRANOLOL HYDROCHLORIDE
     Indication: PORTAL HYPERTENSION
     Dosage: UNK
     Route: 048
  3. HARVONI [Suspect]
     Active Substance: LEDIPASVIR\SOFOSBUVIR
     Indication: HEPATITIS C
     Dosage: 1 DOSE UNIT (90+400 MG) DAILY
     Route: 048
     Dates: start: 20160415, end: 20160506
  4. FUROSEMIDE. [Concomitant]
     Active Substance: FUROSEMIDE
     Indication: FLUID RETENTION
     Dosage: UNK
     Route: 048

REACTIONS (2)
  - Hepatopulmonary syndrome [Recovering/Resolving]
  - Respiratory failure [Recovering/Resolving]

NARRATIVE: CASE EVENT DATE: 20160506
